FAERS Safety Report 4290328-0 (Version None)
Quarter: 2004Q1

REPORT INFORMATION
  Report Type: 
  Country: None (occurrence: None)
  Receive Date: 20040209
  Receipt Date: 20040129
  Transmission Date: 20041129
  Serious: Yes (Death)
  Sender: FDA-Public Use
  Company Number: 04-00047

PATIENT
  Sex: Male

DRUGS (1)
  1. KADIAN [Suspect]
     Dosage: ORAL
     Route: 048

REACTIONS (1)
  - HYPERAESTHESIA [None]
